FAERS Safety Report 5811516-5 (Version None)
Quarter: 2008Q3

REPORT INFORMATION
  Report Type: 
  Country: None (occurrence: None)
  Receive Date: 20080716
  Receipt Date: 20080715
  Transmission Date: 20090109
  Serious: Yes (Hospitalization)
  Sender: FDA-Public Use
  Company Number: US-EISAI MEDICAL RESEARCH-E2020-01667-CLI-US

PATIENT
  Sex: Female
  Weight: 80 kg

DRUGS (8)
  1. DONEPEZIL HCL [Suspect]
     Indication: DEMENTIA ALZHEIMER'S TYPE
     Dosage: DOUBLE BLIND
     Route: 048
     Dates: start: 20070921, end: 20070923
  2. NAMENDA [Concomitant]
     Route: 048
     Dates: start: 20040101
  3. CAPTOPRIL [Concomitant]
     Route: 048
     Dates: start: 19970101
  4. METHIMAZOLE [Concomitant]
     Route: 048
     Dates: start: 20020101
  5. HYDROCHLOROTHIAZIDE [Concomitant]
     Route: 048
     Dates: start: 19970101
  6. METOPROLOL TARTRATE [Concomitant]
     Route: 048
     Dates: start: 20020101
  7. VITAMIN B-12 [Concomitant]
     Route: 048
     Dates: start: 20060828, end: 20070628
  8. VITAMIN B-12 [Concomitant]
     Dates: start: 20070828

REACTIONS (8)
  - ATRIAL FIBRILLATION [None]
  - CONVULSION [None]
  - ELECTROLYTE IMBALANCE [None]
  - ENCEPHALOPATHY [None]
  - PANCREATITIS [None]
  - PNEUMONIA [None]
  - RESPIRATORY FAILURE [None]
  - SEPSIS [None]
